FAERS Safety Report 21728808 (Version 1)
Quarter: 2022Q4

REPORT INFORMATION
  Report Type: Spontaneous
  Country: US (occurrence: US)
  Receive Date: 20221214
  Receipt Date: 20221214
  Transmission Date: 20230113
  Serious: Yes (Hospitalization)
  Sender: FDA-Public Use
  Company Number: US-ViiV Healthcare Limited-89031

PATIENT

DRUGS (1)
  1. DOVATO [Suspect]
     Active Substance: DOLUTEGRAVIR SODIUM\LAMIVUDINE
     Indication: HIV infection
     Dosage: UNK
     Dates: start: 202111

REACTIONS (8)
  - Hospitalisation [Unknown]
  - Musculoskeletal discomfort [Unknown]
  - Influenza like illness [Unknown]
  - Gait inability [Unknown]
  - Asthenia [Unknown]
  - Bone pain [Unknown]
  - Diarrhoea [Unknown]
  - Ill-defined disorder [Unknown]

NARRATIVE: CASE EVENT DATE: 20220901
